FAERS Safety Report 13133416 (Version 2)
Quarter: 2017Q1

REPORT INFORMATION
  Report Type: Report from Study
  Country: IL (occurrence: IL)
  Receive Date: 20170120
  Receipt Date: 20170208
  Transmission Date: 20170428
  Serious: Yes (Other)
  Sender: FDA-Public Use
  Company Number: IL-TEVA-729695ACC

PATIENT
  Age: 41 Year
  Sex: Female

DRUGS (1)
  1. COPAXONE [Suspect]
     Active Substance: GLATIRAMER ACETATE
     Indication: MULTIPLE SCLEROSIS
     Route: 058
     Dates: start: 20150101, end: 201512

REACTIONS (2)
  - Asphyxia [Recovered/Resolved]
  - Face oedema [Recovered/Resolved]

NARRATIVE: CASE EVENT DATE: 201512
